FAERS Safety Report 10437925 (Version 2)
Quarter: 2014Q3

REPORT INFORMATION
  Report Type: Spontaneous
  Country: US (occurrence: US)
  Receive Date: 20140908
  Receipt Date: 20140908
  Transmission Date: 20150326
  Serious: No
  Sender: FDA-Public Use
  Company Number: US-BRISTOL-MYERS SQUIBB COMPANY-19118405

PATIENT
  Age: 36 Year
  Sex: Female
  Weight: 115.64 kg

DRUGS (1)
  1. ABILIFY [Suspect]
     Active Substance: ARIPIPRAZOLE
     Indication: BIPOLAR DISORDER

REACTIONS (4)
  - Somnolence [Unknown]
  - Nausea [Unknown]
  - Decreased appetite [Unknown]
  - Hypotension [Unknown]
